FAERS Safety Report 11072002 (Version 2)
Quarter: 2015Q2

REPORT INFORMATION
  Report Type: Spontaneous
  Country: US (occurrence: US)
  Receive Date: 20150428
  Receipt Date: 20150609
  Transmission Date: 20150821
  Serious: Yes (Hospitalization, Other)
  Sender: FDA-Public Use
  Company Number: US-PFIZER INC-2015142844

PATIENT
  Age: 75 Year
  Sex: Male

DRUGS (8)
  1. INSULIN [Concomitant]
     Active Substance: INSULIN NOS
     Dosage: UNK, AS NEEDED
     Dates: start: 2011
  2. GLIPIZIDE. [Concomitant]
     Active Substance: GLIPIZIDE
     Dosage: 5 MG, 3X/DAY
  3. MORPHINE [Concomitant]
     Active Substance: MORPHINE
     Dosage: UNK, 3X/DAY (60 ER EVERY 8 HOUR)
  4. MORPHINE [Concomitant]
     Active Substance: MORPHINE
     Dosage: UNK, EVERY 4 HRS (15 IR 1-2 )
  5. ZOCOR [Concomitant]
     Active Substance: SIMVASTATIN
     Dosage: 10 MG, UNK (AT BED)
  6. LYRICA [Suspect]
     Active Substance: PREGABALIN
     Indication: NEURALGIA
     Dosage: 100 MG, 3X/DAY
  7. LISINOPRIL. [Concomitant]
     Active Substance: LISINOPRIL
     Dosage: UNK (10M AT BED)
  8. LYRICA [Suspect]
     Active Substance: PREGABALIN
     Dosage: 150 MG, UNK
     Dates: start: 20150514

REACTIONS (2)
  - Fall [Unknown]
  - Localised infection [Not Recovered/Not Resolved]
